FAERS Safety Report 8604474-1 (Version None)
Quarter: 2012Q3

REPORT INFORMATION
  Report Type: 
  Country: None (occurrence: None)
  Receive Date: 20120820
  Receipt Date: 20120809
  Transmission Date: 20120928
  Serious: Yes (Other)
  Sender: FDA-Public Use
  Company Number: FR-JNJFOC-20120807092

PATIENT

DRUGS (4)
  1. RALTEGRAVIR [Suspect]
     Indication: HIV INFECTION
     Route: 065
  2. DARUNAVIR ETHANOLATE [Suspect]
     Indication: HIV INFECTION
     Dosage: TWO 300 MG TABLETS TWICE DAILY
     Route: 065
  3. RITONAVIR [Suspect]
     Indication: HIV INFECTION
     Dosage: TWO 100 MG TABLETS TWICE DAILY
     Route: 065
  4. ETRAVIRINE [Suspect]
     Indication: HIV INFECTION
     Dosage: TWO 100 MG TABLETS TWICE DAILY
     Route: 065

REACTIONS (1)
  - MUSCLE SPASMS [None]
